FAERS Safety Report 4632934-7 (Version None)
Quarter: 2005Q2

REPORT INFORMATION
  Report Type: 
  Country: None (occurrence: None)
  Receive Date: 20050412
  Receipt Date: 20050222
  Transmission Date: 20051028
  Serious: Yes (Other)
  Sender: FDA-Public Use
  Company Number: FR-ROCHE-396450

PATIENT
  Age: 21 Year
  Sex: Male
  Weight: 112 kg

DRUGS (6)
  1. TAMIFLU [Suspect]
     Indication: INFLUENZA
     Route: 048
     Dates: start: 20050131, end: 20050204
  2. TAMIFLU [Suspect]
     Route: 048
     Dates: start: 20050207, end: 20050216
  3. TOPLEXIL [Concomitant]
     Indication: INFLUENZA
     Route: 065
     Dates: start: 20050131, end: 20050205
  4. IBUPROFEN [Concomitant]
     Indication: INFLUENZA
     Route: 065
     Dates: start: 20050131, end: 20050205
  5. BECONASE [Concomitant]
     Indication: ASTHMA
     Route: 065
  6. SYMBICORT [Concomitant]
     Indication: DRUG USE FOR UNKNOWN INDICATION
     Route: 055
     Dates: start: 20050131

REACTIONS (2)
  - BALANCE DISORDER [None]
  - VERTIGO [None]
